FAERS Safety Report 4895562-4 (Version None)
Quarter: 2006Q1

REPORT INFORMATION
  Report Type: 
  Country: None (occurrence: None)
  Receive Date: 20060130
  Receipt Date: 20060118
  Transmission Date: 20060701
  Serious: Yes (Hospitalization)
  Sender: FDA-Public Use
  Company Number: GB-ROCHE-432684

PATIENT
  Age: 39 Year
  Sex: Female

DRUGS (5)
  1. MYCOPHENOLATE MOFETIL [Suspect]
     Route: 065
  2. DACLIZUMAB [Suspect]
     Route: 042
  3. DACLIZUMAB [Suspect]
     Route: 042
  4. TACROLIMUS [Suspect]
     Route: 065
  5. CORTICOSTEROIDS [Suspect]
     Route: 065

REACTIONS (1)
  - NEUROLOGICAL SYMPTOM [None]
